FAERS Safety Report 4394581-4 (Version None)
Quarter: 2004Q3

REPORT INFORMATION
  Report Type: 
  Country: None (occurrence: None)
  Receive Date: 20040712
  Receipt Date: 20040622
  Transmission Date: 20050211
  Serious: Yes (Life-Threatening, Hospitalization)
  Sender: FDA-Public Use
  Company Number: US-ROCHE-371765

PATIENT
  Age: 49 Year
  Sex: Female
  Weight: 49.4 kg

DRUGS (1)
  1. FUZEON [Suspect]
     Route: 058
     Dates: start: 20040427, end: 20040619

REACTIONS (4)
  - HYPOTENSION [None]
  - PNEUMONIA [None]
  - RENAL FAILURE ACUTE [None]
  - SEPSIS [None]
